FAERS Safety Report 8776693 (Version 1)
Quarter: 2012Q4

REPORT INFORMATION
  Report Type: 
  Country: US (occurrence: US)
  Receive Date: 20120910
  Receipt Date: 20120910
  Transmission Date: 20130627
  Serious: Yes (Hospitalization, Other)
  Sender: FDA-Public Use
  Company Number: US-ABBOTT-12P-163-0977017-00

PATIENT
  Age: 62 None
  Sex: Female
  Weight: 90.8 kg

DRUGS (9)
  1. HUMIRA PRE-FILLED SYRINGE [Suspect]
     Indication: RHEUMATOID ARTHRITIS
     Route: 058
     Dates: start: 2007, end: 201202
  2. HUMIRA PRE-FILLED SYRINGE [Suspect]
     Route: 058
  3. HYDROXYCHLOROQUINE [Suspect]
     Indication: ANTIINFLAMMATORY THERAPY
  4. SYNTHROID [Concomitant]
     Indication: HYPOTHYROIDISM
     Dosage: alternating dose with 175 every other day
     Route: 048
  5. SYNTHROID [Concomitant]
     Indication: HYPOTHYROIDISM
     Dosage: alternating dose with 200mcg every other day
     Route: 048
  6. CYMBALTA [Concomitant]
     Indication: FIBROMYALGIA
  7. PLAQUENIL [Concomitant]
     Indication: RHEUMATOID ARTHRITIS
  8. LISINOPRIL [Concomitant]
     Indication: HYPERTENSION
  9. NEXIUM [Concomitant]
     Indication: GASTROOESOPHAGEAL REFLUX DISEASE

REACTIONS (20)
  - Gastrointestinal disorder [Recovered/Resolved]
  - Abdominal pain [Recovered/Resolved]
  - Decreased appetite [Recovered/Resolved]
  - Fluid intake reduced [Recovered/Resolved]
  - Hypersomnia [Recovered/Resolved]
  - Urinary tract infection [Recovered/Resolved]
  - Gastrointestinal infection [Recovered/Resolved]
  - Urethral disorder [Recovered/Resolved]
  - Dysuria [Recovered/Resolved]
  - Oedema peripheral [Unknown]
  - Muscular weakness [Unknown]
  - SINUS INFECTION [Recovered/Resolved]
  - Sinusitis [Not Recovered/Not Resolved]
  - Unevaluable event [Unknown]
  - Malaise [Unknown]
  - Appendix disorder [Unknown]
  - Abscess intestinal [Recovered/Resolved]
  - Pelvic abscess [Recovered/Resolved]
  - Arthralgia [Recovering/Resolving]
  - Infection masked [Not Recovered/Not Resolved]
